FAERS Safety Report 6543191-9 (Version None)
Quarter: 2010Q1

REPORT INFORMATION
  Report Type: 
  Country: None (occurrence: None)
  Receive Date: 20100120
  Receipt Date: 20100112
  Transmission Date: 20100710
  Serious: Yes (Hospitalization, Other)
  Sender: FDA-Public Use
  Company Number: US-PFIZER INC-2010005138

PATIENT
  Sex: Female

DRUGS (2)
  1. FLAGYL [Suspect]
  2. CIPROFLOXACIN [Suspect]

REACTIONS (12)
  - ASTHENIA [None]
  - DIARRHOEA [None]
  - DRUG INEFFECTIVE [None]
  - HAEMORRHAGE [None]
  - HYPOAESTHESIA [None]
  - NEUROPATHY PERIPHERAL [None]
  - PARAESTHESIA [None]
  - PSEUDOMEMBRANOUS COLITIS [None]
  - RASH [None]
  - RASH PUSTULAR [None]
  - SYNCOPE [None]
  - VAGINAL SWELLING [None]
